FAERS Safety Report 18541870 (Version 1)
Quarter: 2020Q4

REPORT INFORMATION
  Report Type: Spontaneous
  Country: DE (occurrence: DE)
  Receive Date: 20201124
  Receipt Date: 20201124
  Transmission Date: 20210114
  Serious: Yes (Life-Threatening, Hospitalization)
  Sender: FDA-Public Use
  Company Number: DE-VERTEX PHARMACEUTICALS-2020-023123

PATIENT
  Age: 50 Year
  Sex: Female
  Weight: 54 kg

DRUGS (10)
  1. TRIKAFTA [Suspect]
     Active Substance: ELEXACAFTOR\IVACAFTOR\TEZACAFTOR
     Indication: CYSTIC FIBROSIS
     Dosage: 2 TABLETS AM, 1 TAB PM
     Route: 048
     Dates: start: 202003
  2. LEVEMIR [Concomitant]
     Active Substance: INSULIN DETEMIR
     Indication: DIABETES MELLITUS
     Dosage: 6 IU EVERY DAYS 2 SEPARATED DOSES
     Route: 058
  3. ACC 100 [Concomitant]
     Indication: BRONCHITIS
     Dosage: 1200 MG MILLGRAM(S) EVERY DAYS 2 SEPARATED DOSES
     Route: 048
  4. METHYLPREDNISOLONE. [Concomitant]
     Active Substance: METHYLPREDNISOLONE
     Indication: BRONCHITIS
     Dosage: 2 MG
     Route: 048
  5. DEKRISTOL [Concomitant]
     Active Substance: CHOLECALCIFEROL
     Indication: OSTEOPOROSIS
     Dosage: 50000 IU INTERNATIONAL UNIT(S) EVERY WEEKS 2 SEPARATED DOSES
     Route: 048
  6. TOBRAMYCIN. [Suspect]
     Active Substance: TOBRAMYCIN
     Indication: BRONCHITIS
     Dosage: 380 MG
     Route: 042
     Dates: start: 20200827, end: 20200904
  7. IBUPROFEN. [Concomitant]
     Active Substance: IBUPROFEN
     Indication: MYALGIA
  8. KREON [Concomitant]
     Active Substance: PANCRELIPASE
     Indication: PANCREATIC FAILURE
     Route: 048
  9. AZITHROMYCIN ANHYDROUS. [Concomitant]
     Active Substance: AZITHROMYCIN ANHYDROUS
     Indication: BRONCHITIS
     Dosage: 1000 MG EVERY WEEKS
     Route: 048
  10. CEFEPIME [Suspect]
     Active Substance: CEFEPIME HYDROCHLORIDE
     Indication: BRONCHITIS
     Dosage: 4 G GRAM(S) EVERY DAYS 2 SEPARATED DOSES
     Route: 042
     Dates: start: 20200827, end: 20200904

REACTIONS (2)
  - Acute kidney injury [Recovering/Resolving]
  - Dialysis [Recovered/Resolved]

NARRATIVE: CASE EVENT DATE: 20200907
